FAERS Safety Report 9578398 (Version 1)
Quarter: 2013Q4

REPORT INFORMATION
  Report Type: Spontaneous
  Country: US (occurrence: US)
  Receive Date: 20131001
  Receipt Date: 20131001
  Transmission Date: 20140711
  Serious: No
  Sender: FDA-Public Use
  Company Number: US-AMGEN-USASP2013013304

PATIENT
  Sex: Male
  Weight: 95.24 kg

DRUGS (4)
  1. ENBREL [Suspect]
     Indication: PSORIASIS
     Dosage: 50 MG, QWK
     Route: 058
  2. PRAVASTATIN [Concomitant]
     Dosage: 10 MG, UNK
  3. NASONEX [Concomitant]
     Dosage: 50 MUG, UNK (AC)
  4. FLOVENT [Concomitant]
     Dosage: 110 MUG, UNK

REACTIONS (3)
  - Arthralgia [Unknown]
  - Skin exfoliation [Unknown]
  - Musculoskeletal discomfort [Unknown]
